FAERS Safety Report 10693605 (Version 5)
Quarter: 2019Q3

REPORT INFORMATION
  Report Type: Spontaneous
  Country: US (occurrence: US)
  Receive Date: 20150106
  Receipt Date: 20190805
  Transmission Date: 20191004
  Serious: Yes (Hospitalization, Other)
  Sender: FDA-Public Use
  Company Number: US-PFIZER INC-2015003862

PATIENT
  Age: 87 Year
  Sex: Female

DRUGS (2)
  1. LYRICA [Suspect]
     Active Substance: PREGABALIN
     Indication: NEUROPATHY PERIPHERAL
     Dosage: 25 MG, BID
     Dates: start: 2009
  2. PREDNISONE. [Concomitant]
     Active Substance: PREDNISONE
     Indication: POLYMYALGIA RHEUMATICA
     Dosage: 2.5 MG, UNK

REACTIONS (5)
  - Disease progression [Unknown]
  - Eye disorder [Unknown]
  - Macular degeneration [Unknown]
  - Off label use [Unknown]
  - Prescribed underdose [Unknown]
